FAERS Safety Report 15834664 (Version 3)
Quarter: 2020Q1

REPORT INFORMATION
  Report Type: Report from Study
  Country: TH (occurrence: TH)
  Receive Date: 20190116
  Receipt Date: 20200210
  Transmission Date: 20200409
  Serious: Yes (Hospitalization)
  Sender: FDA-Public Use
  Company Number: PHHY2019TH007462

PATIENT
  Age: 93 Year
  Sex: Female

DRUGS (1)
  1. ENTRESTO [Suspect]
     Active Substance: SACUBITRIL\VALSARTAN
     Indication: CARDIAC FAILURE
     Dosage: 100 MG (SACUBITRIL 49 MG AND VALSARTAN 51 MG), UNK
     Route: 048
     Dates: start: 20180511

REACTIONS (4)
  - Abnormal faeces [Unknown]
  - Hypertension [Unknown]
  - Hypotension [Unknown]
  - Constipation [Unknown]

NARRATIVE: CASE EVENT DATE: 20190101
